FAERS Safety Report 18356169 (Version 3)
Quarter: 2020Q4

REPORT INFORMATION
  Report Type: Spontaneous
  Country: US (occurrence: US)
  Receive Date: 20201007
  Receipt Date: 20201105
  Transmission Date: 20210114
  Serious: No
  Sender: FDA-Public Use
  Company Number: US-BIOGEN-2020BI00930060

PATIENT
  Age: 67 Year
  Sex: Male

DRUGS (1)
  1. TECFIDERA [Suspect]
     Active Substance: DIMETHYL FUMARATE
     Indication: MULTIPLE SCLEROSIS
     Route: 048
     Dates: start: 20140922

REACTIONS (9)
  - Muscle spasms [Not Recovered/Not Resolved]
  - Intentional product misuse [Unknown]
  - Dizziness [Unknown]
  - Product dose omission issue [Unknown]
  - Tremor [Not Recovered/Not Resolved]
  - Balance disorder [Unknown]
  - Anger [Unknown]
  - Nervousness [Unknown]
  - Neuropathy peripheral [Unknown]

NARRATIVE: CASE EVENT DATE: 20201026
